FAERS Safety Report 8847079 (Version 1)
Quarter: 2012Q4

REPORT INFORMATION
  Report Type: 
  Country: SI (occurrence: SI)
  Receive Date: 20121018
  Receipt Date: 20121018
  Transmission Date: 20130627
  Serious: Yes (Death)
  Sender: FDA-Public Use
  Company Number: PHHY2012SI092623

PATIENT

DRUGS (2)
  1. RIVASTIGMINE [Suspect]
     Indication: DEMENTIA ALZHEIMER^S TYPE
     Dosage: 4.6 mg / 24 Hrs
     Route: 062
  2. RIVASTIGMINE [Suspect]
     Dosage: 9.5 mg / 24 Hrs
     Route: 062

REACTIONS (1)
  - Death [Fatal]
